FAERS Safety Report 7541790-9 (Version None)
Quarter: 2011Q2

REPORT INFORMATION
  Report Type: 
  Country: None (occurrence: None)
  Receive Date: 20110613
  Receipt Date: 20110603
  Transmission Date: 20111010
  Serious: Yes (Hospitalization, Other)
  Sender: FDA-Public Use
  Company Number: HR-JNJFOC-20110602896

PATIENT
  Age: 25 Year
  Sex: Female

DRUGS (8)
  1. RISPERDAL CONSTA [Suspect]
     Indication: MENTAL RETARDATION
     Route: 030
     Dates: start: 20101001
  2. RISPERDAL CONSTA [Suspect]
     Indication: ACUTE PSYCHOSIS
     Route: 030
     Dates: start: 20101001
  3. RISPERDAL CONSTA [Suspect]
     Route: 030
     Dates: start: 20070101
  4. DIAZEPAM [Suspect]
     Indication: ACUTE PSYCHOSIS
     Route: 065
     Dates: start: 20070101
  5. RISPERDAL CONSTA [Suspect]
     Route: 030
     Dates: start: 20101001
  6. RISPERIDONE [Suspect]
     Indication: ACUTE PSYCHOSIS
     Route: 048
     Dates: start: 20070101
  7. RISPERDAL CONSTA [Suspect]
     Route: 030
     Dates: start: 20070101
  8. RISPERDAL CONSTA [Suspect]
     Indication: SCHIZOAFFECTIVE DISORDER
     Route: 030
     Dates: start: 20070101

REACTIONS (7)
  - SCHIZOPHRENIA [None]
  - ANXIETY [None]
  - DELUSION [None]
  - MENTAL STATUS CHANGES [None]
  - ACTIVITIES OF DAILY LIVING IMPAIRED [None]
  - TREATMENT NONCOMPLIANCE [None]
  - ABNORMAL BEHAVIOUR [None]
